FAERS Safety Report 17434348 (Version 1)
Quarter: 2020Q1

REPORT INFORMATION
  Report Type: Spontaneous
  Country: NL (occurrence: NL)
  Receive Date: 20200219
  Receipt Date: 20200219
  Transmission Date: 20200409
  Serious: Yes (Death)
  Sender: FDA-Public Use
  Company Number: NL-TEVA-2020-NL-1187161

PATIENT
  Sex: Female

DRUGS (1)
  1. SILDENAFIL TEVA 20 MG, FILMOMHULDE TABLETTEN [Suspect]
     Active Substance: SILDENAFIL
     Indication: PULMONARY ARTERIAL HYPERTENSION
     Dosage: 60 MILLIGRAM DAILY;
     Route: 048
     Dates: start: 20191104

REACTIONS (1)
  - Death [Fatal]
